FAERS Safety Report 4610031-4 (Version None)
Quarter: 2005Q1

REPORT INFORMATION
  Report Type: 
  Country: None (occurrence: None)
  Receive Date: 20050316
  Receipt Date: 20050303
  Transmission Date: 20050727
  Serious: Yes (Death)
  Sender: FDA-Public Use
  Company Number: US-ROCHE-397289

PATIENT
  Age: 43 Year
  Sex: Male
  Weight: 61.2 kg

DRUGS (5)
  1. PEGASYS [Suspect]
     Indication: HEPATITIS C
     Route: 030
     Dates: start: 20040120, end: 20040601
  2. PEGASYS [Suspect]
     Route: 030
     Dates: start: 20041001, end: 20041112
  3. PEGASYS [Suspect]
     Route: 030
     Dates: start: 20041213, end: 20050112
  4. COPEGUS [Concomitant]
     Indication: HEPATITIS C
     Dosage: INTERRUPTED FROM 01 JUN 2004 TO 01 OCT 2004 ADN FROM 12 NOV 2004 TO 13 DEC 2004.
     Route: 048
     Dates: start: 20040120, end: 20050112
  5. DIPROLENE [Concomitant]
     Indication: DERMATITIS
     Dosage: DAILY.
     Route: 061
     Dates: start: 20040301, end: 20050112

REACTIONS (3)
  - ALCOHOL PROBLEM [None]
  - HAEMORRHAGIC STROKE [None]
  - THROMBOCYTOPENIA [None]
